FAERS Safety Report 24365326 (Version 2)
Quarter: 2024Q4

REPORT INFORMATION
  Report Type: Spontaneous
  Country: IT (occurrence: IT)
  Receive Date: 20240926
  Receipt Date: 20241017
  Transmission Date: 20250115
  Serious: Yes (Other)
  Sender: CELLTRION
  Company Number: None

PATIENT

DRUGS (6)
  1. INFLIXIMAB [Suspect]
     Active Substance: INFLIXIMAB
     Indication: Ankylosing spondylitis
     Dosage: 400 MG, 1 TOTAL
     Route: 042
     Dates: start: 20240214, end: 20240214
  2. FLECAINIDE DOC GENERICI [Concomitant]
     Indication: Tachycardia
     Dosage: UNK
     Route: 048
     Dates: start: 20231201
  3. FLECAINIDE DOC GENERICI [Concomitant]
     Indication: Extrasystoles
  4. SULFASALAZINE [Concomitant]
     Active Substance: SULFASALAZINE
     Indication: Ankylosing spondylitis
     Dosage: UNK
     Route: 048
     Dates: start: 19840101
  5. METOPROLOLO DOC [Concomitant]
     Indication: Extrasystoles
     Dosage: UNK
     Route: 048
     Dates: start: 20231101
  6. METOPROLOLO DOC [Concomitant]
     Indication: Tachycardia

REACTIONS (3)
  - Ankylosing spondylitis [Not Recovered/Not Resolved]
  - Therapeutic response changed [Not Recovered/Not Resolved]
  - Overdose [Unknown]

NARRATIVE: CASE EVENT DATE: 20240214
